FAERS Safety Report 5281514-1 (Version None)
Quarter: 2007Q1

REPORT INFORMATION
  Report Type: 
  Country: None (occurrence: None)
  Receive Date: 20070330
  Receipt Date: 20070320
  Transmission Date: 20070707
  Serious: Yes (Life-Threatening, Hospitalization)
  Sender: FDA-Public Use
  Company Number: GB-AMGEN-UK210693

PATIENT
  Age: 43 Year
  Sex: Female

DRUGS (1)
  1. MIMPARA [Suspect]
     Indication: HYPERPARATHYROIDISM SECONDARY
     Route: 048
     Dates: start: 20060105

REACTIONS (3)
  - BLOOD POTASSIUM INCREASED [None]
  - MUSCULAR WEAKNESS [None]
  - PARAESTHESIA [None]
